FAERS Safety Report 15042640 (Version 1)
Quarter: 2018Q2

REPORT INFORMATION
  Report Type: Spontaneous
  Country: US (occurrence: US)
  Receive Date: 20180621
  Receipt Date: 20180621
  Transmission Date: 20180711
  Serious: No
  Sender: FDA-Public Use
  Company Number: US-ASTRAZENECA-2018SE69419

PATIENT
  Age: 33298 Day
  Sex: Female
  Weight: 59.4 kg

DRUGS (2)
  1. ADVAIR HFA [Concomitant]
     Active Substance: FLUTICASONE PROPIONATE\SALMETEROL XINAFOATE
  2. TUDORZA PRESSAIR [Suspect]
     Active Substance: ACLIDINIUM BROMIDE
     Indication: CHRONIC OBSTRUCTIVE PULMONARY DISEASE
     Dosage: 400MCG, TWO TIMES A DAY
     Route: 055

REACTIONS (10)
  - Cardiac murmur [Unknown]
  - Device malfunction [Unknown]
  - Wrong technique in product usage process [Unknown]
  - Asthma [Unknown]
  - Intentional product misuse [Unknown]
  - Off label use [Unknown]
  - Body height decreased [Unknown]
  - Drug dose omission [Recovered/Resolved]
  - Macular degeneration [Unknown]
  - Memory impairment [Unknown]

NARRATIVE: CASE EVENT DATE: 201712
